FAERS Safety Report 4972214-3 (Version None)
Quarter: 2006Q2

REPORT INFORMATION
  Report Type: 
  Country: None (occurrence: None)
  Receive Date: 20060413
  Receipt Date: 20060406
  Transmission Date: 20061013
  Serious: Yes (Hospitalization, Disabling)
  Sender: FDA-Public Use
  Company Number: JP-JPN-A200601152

PATIENT
  Age: 68 Year
  Sex: Female

DRUGS (5)
  1. PAXIL [Suspect]
     Indication: DEPRESSION
     Dosage: 10MG THREE TIMES PER DAY
     Route: 048
     Dates: start: 20060221, end: 20060402
  2. SYMMETREL [Concomitant]
     Dosage: 150MG PER DAY
     Route: 048
  3. MENESIT [Concomitant]
     Dosage: 300MG PER DAY
     Route: 048
  4. HALCION [Concomitant]
     Dosage: .25MG PER DAY
     Route: 048
  5. NAUZELIN [Concomitant]
     Dosage: 30MG PER DAY
     Route: 065

REACTIONS (10)
  - AKINESIA [None]
  - BLOOD CREATINE PHOSPHOKINASE INCREASED [None]
  - BLOOD CREATININE INCREASED [None]
  - BLOOD UREA INCREASED [None]
  - DEHYDRATION [None]
  - DYSPHAGIA [None]
  - MUSCULOSKELETAL STIFFNESS [None]
  - NEUROLEPTIC MALIGNANT SYNDROME [None]
  - PYREXIA [None]
  - TREMOR [None]
